FAERS Safety Report 5096806-9 (Version None)
Quarter: 2006Q3

REPORT INFORMATION
  Report Type: 
  Country: None (occurrence: None)
  Receive Date: 20060831
  Receipt Date: 20060824
  Transmission Date: 20061208
  Serious: Yes (Hospitalization, Other)
  Sender: FDA-Public Use
  Company Number: 2006100088

PATIENT
  Age: 64 Year
  Sex: Male
  Weight: 70 kg

DRUGS (6)
  1. LIPITOR [Suspect]
     Indication: HYPERCHOLESTEROLAEMIA
     Dosage: ORAL
     Route: 048
  2. CONIEL (BENIDIPINE HYDROCHLORIDE) [Concomitant]
  3. FAMOTIDINE [Concomitant]
  4. MUCOSOLVAN (AMBROXOL HYDROCHLORIDE) [Concomitant]
  5. GASCON (DIMETICONE) [Concomitant]
  6. VITANEURIN (THIAMINE HYDROCHLORIDE) [Concomitant]

REACTIONS (1)
  - HEPATITIS ACUTE [None]
